FAERS Safety Report 19737073 (Version 6)
Quarter: 2022Q1

REPORT INFORMATION
  Report Type: Report from Study
  Country: ES (occurrence: ES)
  Receive Date: 20210823
  Receipt Date: 20220127
  Transmission Date: 20220423
  Serious: Yes (Other)
  Sender: FDA-Public Use
  Company Number: ES-PFIZER INC-202101064015

PATIENT
  Age: 87 Year
  Sex: Male
  Weight: 72 kg

DRUGS (7)
  1. SASANLIMAB [Suspect]
     Active Substance: SASANLIMAB
     Indication: Bladder cancer
     Dosage: 300 MG, EVERY 4 WEEKS
     Route: 058
     Dates: start: 20210623, end: 20210623
  2. BCG VACCINE [Suspect]
     Active Substance: BCG VACCINE
     Indication: Bladder cancer
     Dosage: 50 MG/50 ML, PER ARM B
     Route: 043
     Dates: start: 20210623, end: 20210729
  3. DOXAZOSIN MESYLATE [Suspect]
     Active Substance: DOXAZOSIN MESYLATE
     Indication: Hypertension
     Dosage: 8 MG, 1X/DAY, DOXAZOSINA
     Route: 048
     Dates: start: 2002, end: 20210811
  4. METFORMIN [Suspect]
     Active Substance: METFORMIN HYDROCHLORIDE
     Indication: Diabetes mellitus
     Dosage: 850 MG, 1X/DAY, METFORMINA
     Route: 048
     Dates: start: 20160118, end: 20210811
  5. HYDROCHLOROTHIAZIDE\TELMISARTAN [Suspect]
     Active Substance: HYDROCHLOROTHIAZIDE\TELMISARTAN
     Indication: Hypertension
     Dosage: [HYDROCHLOROTHIAZIDE 25 MG]/ [TELMISARTAN 80 MG], 1X/DAY
     Route: 048
     Dates: start: 2002, end: 20210811
  6. OMEPRAZOLE [Concomitant]
     Active Substance: OMEPRAZOLE
     Indication: Prophylaxis
     Dosage: 20 MG, 1X/DAY
     Route: 048
     Dates: start: 202008
  7. FERROUS SULFATE [Concomitant]
     Active Substance: FERROUS SULFATE
     Indication: Anaemia
     Dosage: 105 MG, 1X/DAY
     Route: 048
     Dates: start: 202103

REACTIONS (1)
  - Acute kidney injury [Recovered/Resolved]

NARRATIVE: CASE EVENT DATE: 20210811
